FAERS Safety Report 24067765 (Version 1)
Quarter: 2024Q3

REPORT INFORMATION
  Report Type: Spontaneous
  Country: GB (occurrence: GB)
  Receive Date: 20240710
  Receipt Date: 20240710
  Transmission Date: 20241016
  Serious: Yes (Other)
  Sender: TEVA
  Company Number: GB-MHRA-EMIS-4978-9b8523e9-f494-481e-8684-8df952e40803

PATIENT
  Age: 22 Year
  Sex: Female
  Weight: 147 kg

DRUGS (7)
  1. ARIPIPRAZOLE [Suspect]
     Active Substance: ARIPIPRAZOLE
     Dosage: 1 OD AS PER PSYCHIATRY
     Route: 065
     Dates: start: 20240618, end: 20240702
  2. PENICILLIN V [Concomitant]
     Active Substance: PENICILLIN V
     Dosage: TWO TO BE TAKEN FOUR TIMES A DAY
     Dates: start: 20240702
  3. ARIPIPRAZOLE [Concomitant]
     Active Substance: ARIPIPRAZOLE
     Dosage: 1 OD AS PER PSYCHIATRY
     Dates: start: 20240509, end: 20240702
  4. MIRTAZAPINE [Concomitant]
     Active Substance: MIRTAZAPINE
     Dosage: ONE TO BE TAKEN AT NIGHT- FOR MENTAL HEALTH
     Dates: start: 20240614
  5. FUCIDIN [Concomitant]
     Active Substance: FUSIDATE SODIUM
     Dosage: APPLY THREE TIMES A DAY FOR 7 DAYS
     Dates: start: 20240612
  6. BETAMETHASONE\FUSIDIC ACID [Concomitant]
     Active Substance: BETAMETHASONE\FUSIDIC ACID
     Dosage: APPLY THINLY TWICE A DAY-PLEASE STOP WHEN REDNESS RESOLVED
     Dates: start: 20240614
  7. MIRTAZAPINE [Concomitant]
     Active Substance: MIRTAZAPINE
     Dosage: ONE TO BE TAKEN AT NIGHT INSTEAD OF 15MG STRENGTH
     Dates: start: 20240621

REACTIONS (1)
  - Oedema peripheral [Unknown]
